FAERS Safety Report 25105059 (Version 1)
Quarter: 2025Q1

REPORT INFORMATION
  Report Type: Spontaneous
  Country: CN (occurrence: CN)
  Receive Date: 20250321
  Receipt Date: 20250321
  Transmission Date: 20250408
  Serious: Yes (Hospitalization)
  Sender: CHEMISCHE FABRIK KREUSSLER
  Company Number: CN-CHEMISCHE FABRIK KREUSSLER-ae009CN25

PATIENT
  Age: 33 Year
  Sex: Female

DRUGS (11)
  1. AETHOXYSKLEROL [Suspect]
     Active Substance: POLIDOCANOL
     Indication: Varicose vein
     Dosage: 60 MG, QD
     Route: 042
     Dates: start: 20250201, end: 20250201
  2. LORATADINE [Concomitant]
     Active Substance: LORATADINE
     Route: 048
  3. TRIAMCINOLONE ACETONIDE [Concomitant]
     Active Substance: TRIAMCINOLONE ACETONIDE
  4. Diosmin Tablets [Concomitant]
     Indication: Varicose vein operation
     Dosage: 0.9 G, QD
     Route: 048
     Dates: start: 20250201, end: 20250210
  5. Mai luo ning oral liquid [Concomitant]
     Indication: Varicose vein operation
     Dosage: 20 ML, TID
     Route: 048
     Dates: start: 20250201, end: 20250210
  6. Aescuven Tablets [Concomitant]
     Indication: Varicose vein operation
     Dosage: 520 MG, BID
     Route: 048
     Dates: start: 20250201, end: 20250210
  7. LORATADINE [Concomitant]
     Active Substance: LORATADINE
  8. METHYLPREDNISOLONE [Concomitant]
     Active Substance: METHYLPREDNISOLONE
     Route: 048
  9. LEVOCETIRIZINE HYDROCHLORIDE [Concomitant]
     Active Substance: LEVOCETIRIZINE HYDROCHLORIDE
  10. BETAMETHASONE [Concomitant]
     Active Substance: BETAMETHASONE
     Route: 061
  11. METHYLPREDNISOLONE [Concomitant]
     Active Substance: METHYLPREDNISOLONE
     Route: 041

REACTIONS (1)
  - Drug eruption [Recovering/Resolving]

NARRATIVE: CASE EVENT DATE: 20250309
